FAERS Safety Report 8365512-7 (Version None)
Quarter: 2012Q2

REPORT INFORMATION
  Report Type: 
  Country: None (occurrence: None)
  Receive Date: 20120516
  Receipt Date: 20120323
  Transmission Date: 20120825
  Serious: Yes (Life-Threatening)
  Sender: FDA-Public Use
  Company Number: FR-BAXTER-2012BAX000404

PATIENT
  Sex: Female

DRUGS (7)
  1. NEORAL [Suspect]
     Route: 065
     Dates: start: 20111029, end: 20120115
  2. FLUDARABINE PHOSPHATE [Suspect]
     Indication: CORD BLOOD TRANSPLANT THERAPY
     Route: 042
     Dates: start: 20120105, end: 20120108
  3. VFEND [Suspect]
     Route: 065
     Dates: start: 20111230, end: 20120115
  4. CYCLOPHOSPHAMIDE [Suspect]
     Indication: CORD BLOOD TRANSPLANT THERAPY
     Route: 042
     Dates: start: 20120105, end: 20120106
  5. THYMOGLOBULIN [Suspect]
     Indication: CORD BLOOD TRANSPLANT THERAPY
     Route: 065
     Dates: start: 20120109, end: 20120110
  6. CEFEPIME [Suspect]
     Indication: CORD BLOOD TRANSPLANT THERAPY
     Route: 042
     Dates: start: 20111230, end: 20120115
  7. TARGOCID [Suspect]
     Route: 065
     Dates: start: 20111227, end: 20120115

REACTIONS (4)
  - CONFUSIONAL STATE [None]
  - ALTERED STATE OF CONSCIOUSNESS [None]
  - HYPOTONIA [None]
  - DYSKINESIA [None]
